FAERS Safety Report 5309217-5 (Version None)
Quarter: 2007Q2

REPORT INFORMATION
  Report Type: 
  Country: None (occurrence: None)
  Receive Date: 20070423
  Receipt Date: 20070411
  Transmission Date: 20071010
  Serious: Yes (Other)
  Sender: FDA-Public Use
  Company Number: 2007315811

PATIENT
  Age: 9 Year
  Sex: Female
  Weight: 54.4316 kg

DRUGS (1)
  1. BENADRYL [Suspect]
     Dosage: NIGHTLY (1 IN 1 D), ORAL
     Route: 048
     Dates: start: 20070301

REACTIONS (2)
  - ABNORMAL BEHAVIOUR [None]
  - DRUG DEPENDENCE [None]
